FAERS Safety Report 7557172-X (Version None)
Quarter: 2011Q2

REPORT INFORMATION
  Report Type: 
  Country: None (occurrence: None)
  Receive Date: 20110620
  Receipt Date: 20110617
  Transmission Date: 20111010
  Serious: Yes (Other)
  Sender: FDA-Public Use
  Company Number: US-AMGEN-USASP2011030128

PATIENT
  Sex: Male

DRUGS (2)
  1. NPLATE [Suspect]
     Indication: IDIOPATHIC THROMBOCYTOPENIC PURPURA
     Dosage: 140 A?G, UNK
     Dates: start: 20100401, end: 20110222
  2. RITUXIMAB [Concomitant]
     Dosage: UNK
     Dates: start: 20100501

REACTIONS (1)
  - THERAPEUTIC RESPONSE DECREASED [None]
